FAERS Safety Report 18058757 (Version 1)
Quarter: 2020Q3

REPORT INFORMATION
  Report Type: Spontaneous
  Country: PL (occurrence: PL)
  Receive Date: 20200723
  Receipt Date: 20200723
  Transmission Date: 20201103
  Serious: Yes (Other)
  Sender: FDA-Public Use
  Company Number: PL-ACCORD-191653

PATIENT
  Age: 42 Year
  Sex: Female
  Weight: 56 kg

DRUGS (1)
  1. TEMOZOLOMIDE ACCORD [Suspect]
     Active Substance: TEMOZOLOMIDE
     Indication: BRAIN NEOPLASM MALIGNANT
     Route: 048
     Dates: start: 20200130

REACTIONS (2)
  - Asthenia [Recovering/Resolving]
  - Liver injury [Recovering/Resolving]

NARRATIVE: CASE EVENT DATE: 20200213
